FAERS Safety Report 4712585-6 (Version None)
Quarter: 2005Q3

REPORT INFORMATION
  Report Type: 
  Country: None (occurrence: None)
  Receive Date: 20050711
  Receipt Date: 20050628
  Transmission Date: 20060218
  Serious: Yes (Hospitalization)
  Sender: FDA-Public Use
  Company Number: 2005095357

PATIENT
  Age: 85 Year
  Sex: Female

DRUGS (9)
  1. ZOLOFT [Suspect]
     Indication: ILL-DEFINED DISORDER
     Dosage: 25 MG (1 IN 1 D), ORAL
     Route: 048
     Dates: start: 20050517, end: 20050522
  2. IRBESARTAN [Concomitant]
  3. NIFEDIPINE [Concomitant]
  4. TRIMETAZIDINE DIHYDROCHLORIDE (TRIMETAZIDINE HYDROCHLORIDE) [Concomitant]
  5. GINKGO BILOBA EXTRACT (GINKGO BILOBA EXTRACT) [Concomitant]
  6. PRAVASTATIN [Concomitant]
  7. ACETAMINOPHEN [Concomitant]
  8. METIPRANOLOL (METIPRANOLOL) [Concomitant]
  9. ALPRAZOLAM [Concomitant]

REACTIONS (10)
  - ABASIA [None]
  - APHASIA [None]
  - APRAXIA [None]
  - ASTHENIA [None]
  - BLOOD CHLORIDE INCREASED [None]
  - BLOOD CREATININE INCREASED [None]
  - CONFUSIONAL STATE [None]
  - DISORIENTATION [None]
  - HYPONATRAEMIA [None]
  - PLATELET COUNT INCREASED [None]
